FAERS Safety Report 6636846-9 (Version None)
Quarter: 2010Q1

REPORT INFORMATION
  Report Type: 
  Country: None (occurrence: None)
  Receive Date: 20100316
  Receipt Date: 20100302
  Transmission Date: 20100710
  Serious: Yes (Hospitalization)
  Sender: FDA-Public Use
  Company Number: US-ELI_LILLY_AND_COMPANY-US201003001201

PATIENT
  Sex: Male

DRUGS (4)
  1. CIALIS [Suspect]
     Indication: ERECTILE DYSFUNCTION
     Dosage: 5 MG, AS NEEDED
     Dates: start: 20100101, end: 20100201
  2. MORPHINE [Concomitant]
  3. PERCOCET [Concomitant]
  4. RITALIN [Concomitant]

REACTIONS (2)
  - DRUG INEFFECTIVE [None]
  - KNEE ARTHROPLASTY [None]
